FAERS Safety Report 5284563-2 (Version None)
Quarter: 2007Q2

REPORT INFORMATION
  Report Type: 
  Country: None (occurrence: None)
  Receive Date: 20070403
  Receipt Date: 20070328
  Transmission Date: 20071010
  Serious: Yes (Life-Threatening, Hospitalization)
  Sender: FDA-Public Use
  Company Number: FR-GLAXOSMITHKLINE-B0464565A

PATIENT
  Age: 67 Year
  Sex: Male

DRUGS (5)
  1. CEFUROXIME [Suspect]
     Indication: BRONCHITIS
     Dosage: 250MG TWICE PER DAY
     Route: 048
     Dates: start: 20070310, end: 20070317
  2. SOLUPRED 20 [Concomitant]
     Indication: BRONCHITIS
     Route: 048
     Dates: start: 20070310, end: 20070317
  3. INIPOMP [Concomitant]
     Indication: GASTROOESOPHAGEAL REFLUX DISEASE
  4. ASPEGIC 1000 [Concomitant]
     Indication: EMBOLISM
  5. TADENAN [Concomitant]
     Indication: BENIGN PROSTATIC HYPERPLASIA

REACTIONS (5)
  - ECCHYMOSIS [None]
  - INFLAMMATION [None]
  - PURPURA [None]
  - RED BLOOD CELL SEDIMENTATION RATE INCREASED [None]
  - THROMBOCYTOPENIA [None]
